FAERS Safety Report 7304808-4 (Version None)
Quarter: 2011Q1

REPORT INFORMATION
  Report Type: 
  Country: None (occurrence: None)
  Receive Date: 20110222
  Receipt Date: 20110209
  Transmission Date: 20110831
  Serious: No
  Sender: FDA-Public Use
  Company Number: US-PFIZER INC-US-WYE-H14822010

PATIENT
  Sex: Female

DRUGS (4)
  1. ADDERALL 10 [Concomitant]
  2. PRISTIQ [Suspect]
     Indication: DEPRESSION
     Dosage: 50 MG, 1X/DAY
     Route: 065
     Dates: start: 20100401
  3. ABILIFY [Concomitant]
  4. LAMICTAL [Concomitant]

REACTIONS (1)
  - DRUG INEFFECTIVE [None]
